FAERS Safety Report 25394717 (Version 1)
Quarter: 2025Q2

REPORT INFORMATION
  Report Type: Spontaneous
  Country: US (occurrence: US)
  Receive Date: 20250604
  Receipt Date: 20250604
  Transmission Date: 20250716
  Serious: Yes (Other)
  Sender: AMGEN
  Company Number: US-AMGEN-USASP2025106692

PATIENT
  Sex: Female

DRUGS (1)
  1. REPATHA [Suspect]
     Active Substance: EVOLOCUMAB
     Indication: Blood cholesterol abnormal
     Dosage: 140 MILLIGRAM, Q2WK
     Route: 058

REACTIONS (6)
  - Dry age-related macular degeneration [Recovered/Resolved]
  - Neovascular age-related macular degeneration [Recovered/Resolved]
  - Visual impairment [Unknown]
  - Memory impairment [Unknown]
  - Fall [Unknown]
  - Ill-defined disorder [Unknown]
